FAERS Safety Report 18631675 (Version 1)
Quarter: 2020Q4

REPORT INFORMATION
  Report Type: Report from Study
  Country: US (occurrence: US)
  Receive Date: 20201218
  Receipt Date: 20201218
  Transmission Date: 20210114
  Serious: Yes (Hospitalization)
  Sender: FDA-Public Use
  Company Number: US-IPSEN BIOPHARMACEUTICALS, INC.-2019-01027

PATIENT
  Age: 3 Year
  Sex: Male
  Weight: 11.39 kg

DRUGS (1)
  1. DYSPORT [Suspect]
     Active Substance: ABOBOTULINUMTOXINA
     Indication: MUSCLE SPASTICITY
     Dosage: 440IU
     Route: 030
     Dates: start: 20180522, end: 20180522

REACTIONS (11)
  - Otitis media acute [Recovered/Resolved]
  - Nasal congestion [Recovered/Resolved]
  - Otitis media acute [Recovered/Resolved]
  - Developmental hip dysplasia [Recovered/Resolved]
  - Pharyngitis [Recovered/Resolved]
  - Upper respiratory tract infection [Recovered/Resolved]
  - Upper respiratory tract infection [Recovered/Resolved]
  - Joint dislocation [Recovered/Resolved]
  - Tonsillitis [Recovered/Resolved]
  - Constipation [Recovered/Resolved]
  - Urinary tract infection [Recovered/Resolved]

NARRATIVE: CASE EVENT DATE: 20180723
